FAERS Safety Report 10958649 (Version 1)
Quarter: 2015Q1

REPORT INFORMATION
  Report Type: Spontaneous
  Country: NZ (occurrence: NZ)
  Receive Date: 20150326
  Receipt Date: 20150326
  Transmission Date: 20150721
  Serious: Yes (Other)
  Sender: FDA-Public Use
  Company Number: NZ-BAYER-2015-046745

PATIENT
  Age: 32 Year
  Sex: Female

DRUGS (2)
  1. MIRENA [Suspect]
     Active Substance: LEVONORGESTREL
     Dosage: 20 MCG/24HR, CONT
     Route: 015
     Dates: start: 2004, end: 2009
  2. MIRENA [Suspect]
     Active Substance: LEVONORGESTREL
     Dosage: 20 MCG/24HR, CONT
     Route: 015
     Dates: start: 2009, end: 201408

REACTIONS (5)
  - Asherman^s syndrome [None]
  - Vaginal haemorrhage [Not Recovered/Not Resolved]
  - Genital haemorrhage [None]
  - Amenorrhoea [Not Recovered/Not Resolved]
  - Polycystic ovaries [None]
